FAERS Safety Report 18920395 (Version 1)
Quarter: 2021Q1

REPORT INFORMATION
  Report Type: Spontaneous
  Country: US (occurrence: US)
  Receive Date: 20210222
  Receipt Date: 20210222
  Transmission Date: 20210420
  Serious: Yes (Hospitalization)
  Sender: FDA-Public Use
  Company Number: US-SA-2021SA052558

PATIENT
  Age: 81 Year
  Sex: Female

DRUGS (1)
  1. ALLEGRA [Suspect]
     Active Substance: FEXOFENADINE HYDROCHLORIDE
     Indication: SINUS DISORDER
     Dosage: 180 MG, PRN
     Dates: start: 20110210, end: 20210205

REACTIONS (3)
  - Dysphonia [Unknown]
  - Throat tightness [Unknown]
  - Burning sensation [Unknown]

NARRATIVE: CASE EVENT DATE: 20210210
